FAERS Safety Report 9272001 (Version 2)
Quarter: 2013Q3

REPORT INFORMATION
  Report Type: Spontaneous
  Country: AU (occurrence: AU)
  Receive Date: 20130506
  Receipt Date: 20130701
  Transmission Date: 20140515
  Serious: Yes (Disabling)
  Sender: FDA-Public Use
  Company Number: AU-009507513-1304AUS002757

PATIENT
  Age: 15 Year
  Sex: Female
  Weight: 57 kg

DRUGS (3)
  1. NASONEX [Suspect]
     Indication: CHRONIC SINUSITIS
     Dosage: 2 PUFFS INTO NOSTRILS, QD
     Route: 045
     Dates: start: 20130307, end: 20130312
  2. ROXITHROMYCIN [Concomitant]
     Dosage: 1 DF, BID
     Route: 048
     Dates: start: 20130225
  3. AUGMENTIN DUO [Concomitant]
     Dosage: 1 DF, BID
     Route: 048
     Dates: start: 20130307

REACTIONS (3)
  - Lymphadenopathy [Not Recovered/Not Resolved]
  - Dizziness [Not Recovered/Not Resolved]
  - Tremor [Not Recovered/Not Resolved]
